FAERS Safety Report 9270766 (Version 1)
Quarter: 2013Q2

REPORT INFORMATION
  Report Type: Spontaneous
  Country: CA (occurrence: CA)
  Receive Date: 20130506
  Receipt Date: 20130506
  Transmission Date: 20140414
  Serious: Yes (Hospitalization)
  Sender: FDA-Public Use
  Company Number: CA-AMGEN-CANSP2013030322

PATIENT
  Age: 73 Year
  Sex: Female

DRUGS (2)
  1. NEULASTA [Suspect]
     Indication: HODGKIN^S DISEASE
     Dosage: UNK 10MG/1.0ML, ONE TIME DOSE
     Dates: start: 20130322, end: 20130322
  2. CHEMOTHERAPEUTICS [Concomitant]
     Indication: HODGKIN^S DISEASE
     Dosage: UNK
     Dates: start: 20130321

REACTIONS (2)
  - Body temperature increased [Recovered/Resolved]
  - Drug ineffective [Recovered/Resolved]
